FAERS Safety Report 22070184 (Version 2)
Quarter: 2023Q1

REPORT INFORMATION
  Report Type: Other
  Country: CN (occurrence: CN)
  Receive Date: 20230307
  Receipt Date: 20230331
  Transmission Date: 20230418
  Serious: No
  Sender: FDA-Public Use
  Company Number: CN-CSTONE PHARMACEUTICALS (SUZHOU) CO., LTD.-2023CN00180

PATIENT
  Sex: Male

DRUGS (2)
  1. AYVAKIT [Suspect]
     Active Substance: AVAPRITINIB
     Indication: Gastrointestinal stromal tumour
     Dosage: UNK UNK, UNKNOWN
     Route: 048
     Dates: start: 20210510
  2. AYVAKIT [Suspect]
     Active Substance: AVAPRITINIB
     Dosage: 150 MILLIGRAM, UNKNOWN
     Route: 065
     Dates: start: 20210510

REACTIONS (2)
  - Anaemia [Unknown]
  - Cognitive disorder [Not Recovered/Not Resolved]

NARRATIVE: CASE EVENT DATE: 20210601
